FAERS Safety Report 4385093-2 (Version None)
Quarter: 2004Q2

REPORT INFORMATION
  Report Type: 
  Country: None (occurrence: None)
  Receive Date: 20040621
  Receipt Date: 20040609
  Transmission Date: 20050107
  Serious: Yes (Life-Threatening)
  Sender: FDA-Public Use
  Company Number: 2004SE03253

PATIENT
  Age: 43 Year
  Sex: Male

DRUGS (7)
  1. FOSCAVIR [Suspect]
     Indication: ENCEPHALITIS CYTOMEGALOVIRUS
     Dates: start: 20040507, end: 20040524
  2. NORVIR [Concomitant]
  3. ATAZANAVIR [Concomitant]
  4. VIREAD [Concomitant]
  5. FUZEON [Concomitant]
  6. COMBIVIR [Concomitant]
  7. DAPSON [Concomitant]

REACTIONS (4)
  - DIABETES INSIPIDUS [None]
  - HAEMOLYTIC ANAEMIA [None]
  - HYPERNATRAEMIA [None]
  - RHABDOMYOLYSIS [None]
